FAERS Safety Report 7884365-4 (Version None)
Quarter: 2011Q4

REPORT INFORMATION
  Report Type: 
  Country: None (occurrence: None)
  Receive Date: 20111102
  Receipt Date: 20111101
  Transmission Date: 20120403
  Serious: Yes (Other)
  Sender: FDA-Public Use
  Company Number: US-ROCHE-783801

PATIENT
  Sex: Female
  Weight: 61.29 kg

DRUGS (1)
  1. ACCUTANE [Suspect]
     Indication: ACNE
     Route: 065
     Dates: start: 20000401, end: 20000701

REACTIONS (5)
  - STRESS [None]
  - INFLAMMATORY BOWEL DISEASE [None]
  - LIP DRY [None]
  - DEPRESSION [None]
  - CROHN'S DISEASE [None]
